FAERS Safety Report 5607117-4 (Version None)
Quarter: 2008Q1

REPORT INFORMATION
  Report Type: 
  Country: None (occurrence: None)
  Receive Date: 20080129
  Receipt Date: 20080117
  Transmission Date: 20080703
  Serious: Yes (Other)
  Sender: FDA-Public Use
  Company Number: CA-PFIZER INC-2008007611

PATIENT
  Sex: Female

DRUGS (2)
  1. CHANTIX [Suspect]
     Indication: SMOKING CESSATION THERAPY
     Route: 048
  2. AMITRIPTYLINE HCL [Concomitant]
     Indication: DEPRESSION
     Route: 048

REACTIONS (15)
  - ABDOMINAL DISTENSION [None]
  - ABNORMAL BEHAVIOUR [None]
  - ABNORMAL DREAMS [None]
  - AGGRESSION [None]
  - ANGER [None]
  - ANXIETY [None]
  - CRYING [None]
  - DEPRESSION [None]
  - EUPHORIC MOOD [None]
  - IMPAIRED WORK ABILITY [None]
  - INSOMNIA [None]
  - MANIA [None]
  - NAUSEA [None]
  - PANIC ATTACK [None]
  - RESTLESS LEGS SYNDROME [None]
